FAERS Safety Report 9675020 (Version 1)
Quarter: 2013Q4

REPORT INFORMATION
  Report Type: Spontaneous
  Country: US (occurrence: None)
  Receive Date: 20131105
  Receipt Date: 20131105
  Transmission Date: 20140711
  Serious: No
  Sender: FDA-Public Use
  Company Number: B0938815A

PATIENT
  Sex: 0

DRUGS (3)
  1. MARAVIROC [Suspect]
     Indication: HIV INFECTION
  2. RITONAVIR [Suspect]
     Indication: HIV INFECTION
  3. DARUNAVIR [Suspect]
     Indication: HIV INFECTION

REACTIONS (1)
  - Low density lipoprotein increased [None]
